FAERS Safety Report 25451052 (Version 1)
Quarter: 2025Q2

REPORT INFORMATION
  Report Type: Spontaneous
  Country: PE (occurrence: PE)
  Receive Date: 20250618
  Receipt Date: 20250618
  Transmission Date: 20250717
  Serious: Yes (Death)
  Sender: PFIZER
  Company Number: PE-PFIZER INC-PV202500070983

PATIENT
  Age: 9 Year
  Sex: Female

DRUGS (3)
  1. VORICONAZOLE [Suspect]
     Active Substance: VORICONAZOLE
     Indication: Central nervous system infection
  2. MILTEFOSINE [Suspect]
     Active Substance: MILTEFOSINE
     Indication: Central nervous system infection
  3. ALBENDAZOLE [Suspect]
     Active Substance: ALBENDAZOLE
     Indication: Central nervous system infection

REACTIONS (2)
  - Drug ineffective for unapproved indication [Fatal]
  - Off label use [Unknown]
